FAERS Safety Report 5497121-1 (Version None)
Quarter: 2007Q4

REPORT INFORMATION
  Report Type: 
  Country: None (occurrence: None)
  Receive Date: 20071025
  Receipt Date: 20071015
  Transmission Date: 20080405
  Serious: Yes (Hospitalization, Other)
  Sender: FDA-Public Use
  Company Number: US-ROCHE-510578

PATIENT
  Age: 71 Year
  Sex: Female
  Weight: 59.9 kg

DRUGS (7)
  1. XELODA [Suspect]
     Route: 048
     Dates: start: 20070208, end: 20070222
  2. XELODA [Suspect]
     Route: 048
     Dates: start: 20070223, end: 20070224
  3. ANTIDIARRHOEAL NOS [Suspect]
     Route: 065
     Dates: start: 20070201
  4. CONTRAST DYE [Suspect]
     Route: 065
  5. CIPRO [Suspect]
     Indication: DRUG USE FOR UNKNOWN INDICATION
     Route: 065
  6. ALTACE [Concomitant]
     Indication: HYPERTENSION
  7. ATENOLOL [Concomitant]
     Indication: HYPERTENSION

REACTIONS (13)
  - ACUTE PRERENAL FAILURE [None]
  - ANAEMIA [None]
  - BLOOD PRESSURE INCREASED [None]
  - CHILLS [None]
  - GASTROINTESTINAL OEDEMA [None]
  - GASTROINTESTINAL TOXICITY [None]
  - HYPERTENSIVE ENCEPHALOPATHY [None]
  - HYPOTENSION [None]
  - RASH [None]
  - RENAL FAILURE ACUTE [None]
  - SENSATION OF HEAVINESS [None]
  - SMALL INTESTINAL OBSTRUCTION [None]
  - VISION BLURRED [None]
